FAERS Safety Report 5663055-2 (Version None)
Quarter: 2008Q1

REPORT INFORMATION
  Report Type: 
  Country: None (occurrence: None)
  Receive Date: 20080313
  Receipt Date: 20080304
  Transmission Date: 20080703
  Serious: Yes (Other)
  Sender: FDA-Public Use
  Company Number: GB-JNJFOC-20080301233

PATIENT
  Sex: Male

DRUGS (2)
  1. SPORANOX [Suspect]
     Indication: ANTIFUNGAL PROPHYLAXIS
     Route: 048
  2. FORTISIP [Concomitant]
     Indication: FLUID REPLACEMENT
     Route: 065

REACTIONS (3)
  - DIARRHOEA [None]
  - TUBERCULOSIS [None]
  - WEIGHT DECREASED [None]
